FAERS Safety Report 5149263-8 (Version None)
Quarter: 2006Q4

REPORT INFORMATION
  Report Type: 
  Country: None (occurrence: None)
  Receive Date: 20061113
  Receipt Date: 20051014
  Transmission Date: 20070319
  Serious: No
  Sender: FDA-Public Use
  Company Number: 423371

PATIENT
  Age: 65 Year
  Sex: Male

DRUGS (1)
  1. COREG [Suspect]
     Route: 048

REACTIONS (1)
  - ERECTILE DYSFUNCTION [None]
